FAERS Safety Report 15280144 (Version 1)
Quarter: 2018Q3

REPORT INFORMATION
  Report Type: Spontaneous
  Country: US (occurrence: US)
  Receive Date: 20180730
  Receipt Date: 20180730
  Transmission Date: 20181010
  Serious: Yes (Hospitalization)
  Sender: FDA-Public Use
  Company Number: None

PATIENT
  Sex: Male

DRUGS (2)
  1. ATORVASTATIN 40MG [Concomitant]
     Active Substance: ATORVASTATIN
  2. PROMACTA [Suspect]
     Active Substance: ELTROMBOPAG OLAMINE
     Indication: THROMBOCYTOSIS
     Dosage: ?          OTHER FREQUENCY:EVERY M,W,F;?
     Route: 048
     Dates: start: 20150113

REACTIONS (2)
  - Drug dose omission [None]
  - Hospitalisation [None]
